FAERS Safety Report 4779963-0 (Version None)
Quarter: 2005Q3

REPORT INFORMATION
  Report Type: 
  Country: None (occurrence: None)
  Receive Date: 20050927
  Receipt Date: 20050920
  Transmission Date: 20060218
  Serious: Yes (Hospitalization)
  Sender: FDA-Public Use
  Company Number: JP-JPN-A20052225

PATIENT
  Age: 35 Year
  Sex: Male

DRUGS (1)
  1. ZEFIX [Suspect]
     Dosage: 100MG PER DAY
     Route: 048
     Dates: start: 20050701

REACTIONS (1)
  - HEPATIC FUNCTION ABNORMAL [None]
